FAERS Safety Report 5292924-0 (Version None)
Quarter: 2007Q2

REPORT INFORMATION
  Report Type: 
  Country: None (occurrence: None)
  Receive Date: 20070411
  Receipt Date: 20070406
  Transmission Date: 20071010
  Serious: Yes (Hospitalization)
  Sender: FDA-Public Use
  Company Number: HQWYE896406APR07

PATIENT
  Age: 60 Year
  Sex: Male

DRUGS (9)
  1. AMIODARONE HCL [Suspect]
     Route: 048
     Dates: start: 19960517, end: 20061208
  2. CHLORPHENIRAMINE MALEATE [Concomitant]
     Dosage: ^6 DF^
  3. FLUOXETINE [Concomitant]
  4. SIMVASTATIN [Concomitant]
  5. LISINOPRIL [Concomitant]
     Dosage: 2.5 MG (FREQUENCY UNSPECIFIED)
  6. MAXITROL [Concomitant]
     Dosage: UNSPECIFIED
     Route: 047
  7. PARACETAMOL [Concomitant]
     Dosage: ^8 DF^
  8. XENICAL [Suspect]
     Indication: OBESITY
     Route: 048
     Dates: start: 20060814, end: 20061208
  9. GLYCERYL TRINITRATE [Concomitant]
     Dosage: 1 DF PRN
     Route: 060

REACTIONS (5)
  - CONDITION AGGRAVATED [None]
  - DEHYDRATION [None]
  - HYPOTENSION [None]
  - MALAISE [None]
  - SYNCOPE [None]
